FAERS Safety Report 7782762-9 (Version None)
Quarter: 2011Q3

REPORT INFORMATION
  Report Type: 
  Country: None (occurrence: None)
  Receive Date: 20110928
  Receipt Date: 20110915
  Transmission Date: 20111222
  Serious: Yes (Other)
  Sender: FDA-Public Use
  Company Number: US-BAYER-2011-087738

PATIENT
  Age: 51 Year
  Sex: Female
  Weight: 68.027 kg

DRUGS (2)
  1. RID HOUSEHOLD SPRAY [Suspect]
     Indication: LICE INFESTATION
     Dosage: UNK UNK, QD, BOTTLE SIZE 5OZ
     Dates: start: 20110910, end: 20110911
  2. RID MOUSSE [Suspect]
     Indication: LICE INFESTATION
     Dosage: UNK
     Route: 061
     Dates: start: 20110910

REACTIONS (6)
  - ULCERATIVE KERATITIS [None]
  - LACRIMATION INCREASED [None]
  - EYE DISORDER [None]
  - OCULAR HYPERAEMIA [None]
  - EYE PAIN [None]
  - WRONG TECHNIQUE IN DRUG USAGE PROCESS [None]
